FAERS Safety Report 7498769-5 (Version None)
Quarter: 2011Q2

REPORT INFORMATION
  Report Type: 
  Country: None (occurrence: None)
  Receive Date: 20110524
  Receipt Date: 20110519
  Transmission Date: 20111010
  Serious: No
  Sender: FDA-Public Use
  Company Number: US-PFIZER INC-2011109016

PATIENT
  Sex: Male

DRUGS (2)
  1. DRISDOL [Suspect]
     Dosage: UNK
  2. LIPITOR [Suspect]
     Dosage: UNK

REACTIONS (2)
  - PAIN IN EXTREMITY [None]
  - CHEST PAIN [None]
